FAERS Safety Report 4360228-6 (Version None)
Quarter: 2004Q2

REPORT INFORMATION
  Report Type: 
  Country: None (occurrence: None)
  Receive Date: 20040513
  Receipt Date: 20040507
  Transmission Date: 20050107
  Serious: Yes (Hospitalization)
  Sender: FDA-Public Use
  Company Number: HQWYE752207MAY04

PATIENT
  Age: 53 Year
  Sex: Male

DRUGS (1)
  1. ETODOLAC [Suspect]
     Indication: MONARTHRITIS
     Dosage: 100 MG DAILY
     Route: 048
     Dates: start: 20030825, end: 20030910

REACTIONS (7)
  - ALANINE AMINOTRANSFERASE INCREASED [None]
  - ASPARTATE AMINOTRANSFERASE INCREASED [None]
  - BLOOD ALKALINE PHOSPHATASE INCREASED [None]
  - BLOOD BILIRUBIN INCREASED [None]
  - GAMMA-GLUTAMYLTRANSFERASE INCREASED [None]
  - LEUKOCYTE ALKALINE PHOSPHATASE INCREASED [None]
  - LIVER DISORDER [None]
